FAERS Safety Report 9905059 (Version 2)
Quarter: 2014Q1

REPORT INFORMATION
  Report Type: Spontaneous
  Country: US (occurrence: US)
  Receive Date: 20140218
  Receipt Date: 20140218
  Transmission Date: 20141002
  Serious: No
  Sender: FDA-Public Use
  Company Number: US-GILEAD-2012-0051150

PATIENT
  Age: 63 Year
  Sex: Female

DRUGS (16)
  1. LETAIRIS [Suspect]
     Indication: PULMONARY HYPERTENSION
     Dosage: 5 MG, UNK
     Route: 048
     Dates: start: 20120209, end: 20120214
  2. LETAIRIS [Suspect]
     Indication: RAYNAUD^S PHENOMENON
  3. FUROSEMIDE [Concomitant]
  4. BENADRYL                           /00000402/ [Concomitant]
  5. ADCIRCA [Concomitant]
  6. SERETIDE DISCUS [Concomitant]
  7. ADVIL COLD AND SINUS PLUS [Concomitant]
  8. ALBUTEROL SULFATE [Concomitant]
  9. ASPIRIN [Concomitant]
  10. COUMADIN                           /00014802/ [Concomitant]
  11. FLOMAX                             /00889901/ [Concomitant]
  12. KLOR-CON [Concomitant]
  13. MAGNESIUM OXIDE [Concomitant]
  14. METOLAZONE [Concomitant]
  15. SPIRIVA HANDIHALER [Concomitant]
  16. XANAX [Concomitant]

REACTIONS (2)
  - Epistaxis [Recovered/Resolved]
  - Weight increased [Recovered/Resolved]
